FAERS Safety Report 14141821 (Version 1)
Quarter: 2017Q4

REPORT INFORMATION
  Report Type: Report from Study
  Country: US (occurrence: US)
  Receive Date: 20171030
  Receipt Date: 20171030
  Transmission Date: 20180321
  Serious: Yes (Hospitalization)
  Sender: FDA-Public Use
  Company Number: US-BAYER-2017-156437

PATIENT
  Age: 59 Year
  Sex: Female

DRUGS (3)
  1. NEXAVAR [Suspect]
     Active Substance: SORAFENIB
     Indication: HEPATOCELLULAR CARCINOMA
     Dosage: 400 MG, TID
     Route: 048
     Dates: start: 20170801, end: 201708
  2. NEXAVAR [Suspect]
     Active Substance: SORAFENIB
     Indication: HEPATOCELLULAR CARCINOMA
     Dosage: 400 MG, BID
     Route: 048
     Dates: start: 2017
  3. NEXAVAR [Suspect]
     Active Substance: SORAFENIB
     Indication: HEPATIC CANCER
     Dosage: 400 MG, BID
     Route: 048
     Dates: start: 201708, end: 2017

REACTIONS (14)
  - Abdominal pain [None]
  - Increased tendency to bruise [None]
  - Stomatitis [None]
  - Peripheral swelling [None]
  - Jaundice [None]
  - Fatigue [None]
  - Dysphonia [None]
  - Intentional dose omission [None]
  - Blood urine present [None]
  - Feeding disorder [None]
  - Inappropriate schedule of drug administration [None]
  - Fatigue [None]
  - Abdominal pain upper [Not Recovered/Not Resolved]
  - Decreased appetite [None]

NARRATIVE: CASE EVENT DATE: 201708
